FAERS Safety Report 19678043 (Version 2)
Quarter: 2021Q3

REPORT INFORMATION
  Report Type: Report from Study
  Country: US (occurrence: US)
  Receive Date: 20210809
  Receipt Date: 20210816
  Transmission Date: 20211014
  Serious: Yes (Death, Hospitalization, Other)
  Sender: FDA-Public Use
  Company Number: US-ROCHE-2884411

PATIENT
  Age: 71 Year
  Sex: Female
  Weight: 68 kg

DRUGS (1)
  1. ATEZOLIZUMAB. [Suspect]
     Active Substance: ATEZOLIZUMAB
     Indication: OVARIAN CANCER
     Dosage: OVER 1 HOUR ON DAYS 1 AND 15?LAST DOSE OF ATEZOLIZUMAB ON 14/DEC/2020 (CYCLE 2, DAY 15).
     Route: 041
     Dates: start: 20201030, end: 20201227

REACTIONS (5)
  - Death [Fatal]
  - COVID-19 [Unknown]
  - Dehydration [Unknown]
  - Atrial fibrillation [Unknown]
  - Acute kidney injury [Unknown]

NARRATIVE: CASE EVENT DATE: 20201220
